FAERS Safety Report 6345479-3 (Version None)
Quarter: 2009Q3

REPORT INFORMATION
  Report Type: 
  Country: None (occurrence: None)
  Receive Date: 20090909
  Receipt Date: 20090903
  Transmission Date: 20100115
  Serious: Yes (Other)
  Sender: FDA-Public Use
  Company Number: TR-BRISTOL-MYERS SQUIBB COMPANY-14766927

PATIENT
  Age: 66 Year
  Sex: Female

DRUGS (3)
  1. IXEMPRA KIT [Suspect]
     Indication: BREAST CANCER METASTATIC
     Route: 048
     Dates: start: 20080601, end: 20090501
  2. XELODA [Suspect]
     Indication: BREAST CANCER METASTATIC
  3. AROMASIN [Suspect]
     Indication: BREAST CANCER METASTATIC

REACTIONS (4)
  - BONE MARROW FAILURE [None]
  - FEBRILE NEUTROPENIA [None]
  - NEUROPATHY PERIPHERAL [None]
  - PLEURAL EFFUSION [None]
